FAERS Safety Report 9029254 (Version 1)
Quarter: 2013Q1

REPORT INFORMATION
  Report Type: Spontaneous
  Country: US (occurrence: US)
  Receive Date: 20130125
  Receipt Date: 20130125
  Transmission Date: 20140127
  Serious: Yes (Death, Hospitalization)
  Sender: FDA-Public Use
  Company Number: US-GE HEALTHCARE MEDICAL DIAGNOSTICS-OPTN-PR-1301S-0004

PATIENT
  Sex: Female
  Weight: 152.09 kg

DRUGS (3)
  1. OPTISON [Suspect]
     Indication: CHEST PAIN
     Route: 042
     Dates: start: 20130121, end: 20130121
  2. OPTISON [Suspect]
     Indication: DYSPNOEA
  3. OPTISON [Suspect]
     Indication: DIAGNOSTIC PROCEDURE

REACTIONS (1)
  - Cardio-respiratory arrest [Fatal]
